FAERS Safety Report 23587472 (Version 1)
Quarter: 2024Q1

REPORT INFORMATION
  Report Type: Spontaneous
  Country: CN (occurrence: CN)
  Receive Date: 20240301
  Receipt Date: 20240301
  Transmission Date: 20240410
  Serious: Yes (Other)
  Sender: FDA-Public Use
  Company Number: CN-Eisai-EC-2024-160395

PATIENT
  Age: 56 Year
  Sex: Male
  Weight: 49 kg

DRUGS (1)
  1. LENVATINIB [Suspect]
     Active Substance: LENVATINIB
     Indication: Hepatic cancer
     Route: 048
     Dates: start: 20240112, end: 20240115

REACTIONS (1)
  - Gastrointestinal perforation [Recovering/Resolving]

NARRATIVE: CASE EVENT DATE: 20240113
